FAERS Safety Report 7213146-X (Version None)
Quarter: 2011Q1

REPORT INFORMATION
  Report Type: 
  Country: None (occurrence: None)
  Receive Date: 20110106
  Receipt Date: 20110105
  Transmission Date: 20110831
  Serious: Yes (Hospitalization)
  Sender: FDA-Public Use
  Company Number: US-BRISTOL-MYERS SQUIBB COMPANY-15472152

PATIENT
  Sex: Female

DRUGS (2)
  1. AVAPRO [Suspect]
  2. BLOOD PRESSURE PILL [Concomitant]

REACTIONS (4)
  - LARYNGITIS [None]
  - MEDICATION ERROR [None]
  - PNEUMONIA [None]
  - SINUSITIS [None]
